FAERS Safety Report 17598112 (Version 1)
Quarter: 2020Q1

REPORT INFORMATION
  Report Type: Report from Study
  Country: ES (occurrence: ES)
  Receive Date: 20200330
  Receipt Date: 20200330
  Transmission Date: 20200409
  Serious: Yes (Life-Threatening, Hospitalization)
  Sender: FDA-Public Use
  Company Number: ES-ACCORD-177450

PATIENT
  Age: 53 Year
  Sex: Female

DRUGS (6)
  1. RIVOTRIL [Interacting]
     Active Substance: CLONAZEPAM
     Indication: PRODUCT USED FOR UNKNOWN INDICATION
     Dosage: STRENGTH: 2 MG, 60 TABLETS,SUICIDE ATTEMPT
     Route: 048
     Dates: start: 20191011, end: 20191011
  2. QUETIAPINE/QUETIAPINE FUMARATE [Concomitant]
     Active Substance: QUETIAPINE FUMARATE
     Indication: BORDERLINE PERSONALITY DISORDER
     Dosage: QUETIAPINE (1136A)
     Route: 048
     Dates: end: 20191010
  3. QUETIAPINE. [Suspect]
     Active Substance: QUETIAPINE
     Indication: PRODUCT USED FOR UNKNOWN INDICATION
     Dosage: QUETIAPINE (1136A), SUICIDE ATTEMPT
     Route: 048
     Dates: start: 20191011, end: 20191011
  4. RIVOTRIL [Concomitant]
     Active Substance: CLONAZEPAM
     Indication: BORDERLINE PERSONALITY DISORDER
     Dosage: STRENGTH: 2 MG, 60 TABLETS
     Route: 048
     Dates: end: 20191010
  5. PREGABALIN. [Concomitant]
     Active Substance: PREGABALIN
     Indication: BORDERLINE PERSONALITY DISORDER
     Dosage: PREGABALIN (3897A)
     Route: 048
  6. ESCITALOPRAM [Concomitant]
     Active Substance: ESCITALOPRAM OXALATE
     Indication: BORDERLINE PERSONALITY DISORDER
     Dosage: ESCITALOPRAM (2858A)
     Route: 048

REACTIONS (4)
  - Intentional overdose [Unknown]
  - Respiratory depression [Recovered/Resolved]
  - Coma [Recovered/Resolved]
  - Drug interaction [Unknown]

NARRATIVE: CASE EVENT DATE: 20191011
